FAERS Safety Report 7251584-X (Version None)
Quarter: 2011Q1

REPORT INFORMATION
  Report Type: 
  Country: None (occurrence: None)
  Receive Date: 20110128
  Receipt Date: 20110117
  Transmission Date: 20110831
  Serious: Yes (Hospitalization)
  Sender: FDA-Public Use
  Company Number: CA-ELI_LILLY_AND_COMPANY-CA201101004071

PATIENT
  Age: 85 Year
  Sex: Female

DRUGS (6)
  1. ATACAND [Concomitant]
  2. OXYBUTYNIN [Concomitant]
  3. COENZYME [Concomitant]
  4. FORTEO [Suspect]
     Indication: OSTEOPOROSIS
     Dosage: 20 UG, DAILY (1/D)
     Route: 058
     Dates: start: 20090302, end: 20101125
  5. WARFARIN [Concomitant]
  6. THYROID [Concomitant]

REACTIONS (2)
  - HIP ARTHROPLASTY [None]
  - CYSTITIS [None]
